FAERS Safety Report 24743646 (Version 1)
Quarter: 2024Q4

REPORT INFORMATION
  Report Type: Spontaneous
  Country: EG (occurrence: EG)
  Receive Date: 20241217
  Receipt Date: 20241217
  Transmission Date: 20250115
  Serious: Yes (Other)
  Sender: SANDOZ
  Company Number: EG-SANDOZ-SDZ2024EG101905

PATIENT
  Sex: Female
  Weight: 36 kg

DRUGS (2)
  1. OMNITROPE [Suspect]
     Active Substance: SOMATROPIN
     Indication: Turner^s syndrome
     Dosage: 1.9 MG PER DAY
     Route: 058
  2. VITAMIN D NOS [Suspect]
     Active Substance: CHOLECALCIFEROL\ERGOCALCIFEROL
     Indication: Vitamin D deficiency
     Dosage: UNK
     Route: 065

REACTIONS (9)
  - Renal disorder [Unknown]
  - Ureteric stenosis [Unknown]
  - Growth failure [Unknown]
  - Vitamin D deficiency [Recovering/Resolving]
  - Hepatomegaly [Unknown]
  - Poor quality device used [Unknown]
  - Incorrect dose administered by device [Unknown]
  - Expired device used [Unknown]
  - Device breakage [Unknown]
